FAERS Safety Report 6046792-X (Version None)
Quarter: 2009Q1

REPORT INFORMATION
  Report Type: 
  Country: None (occurrence: None)
  Receive Date: 20090122
  Receipt Date: 20090116
  Transmission Date: 20090719
  Serious: Yes (Hospitalization)
  Sender: FDA-Public Use
  Company Number: A0730993A

PATIENT
  Age: 56 Year
  Sex: Male
  Weight: 118.2 kg

DRUGS (12)
  1. AVANDIA [Suspect]
     Dosage: 8MG PER DAY
     Route: 048
     Dates: start: 20060101, end: 20070101
  2. LOVAZA [Concomitant]
  3. ASPIRIN [Concomitant]
  4. ALLOPURINOL [Concomitant]
  5. FELODIPINE [Concomitant]
  6. GEMFIBROZIL [Concomitant]
  7. GLYBURIDE [Concomitant]
  8. NIACIN [Concomitant]
  9. OMEPRAZOLE [Concomitant]
  10. SIMVASTATIN [Concomitant]
  11. TEMAZEPAM [Concomitant]
  12. VARDENAFIL [Concomitant]

REACTIONS (2)
  - CARDIAC FAILURE CONGESTIVE [None]
  - OEDEMA [None]
